FAERS Safety Report 26136478 (Version 1)
Quarter: 2025Q4

REPORT INFORMATION
  Report Type: Spontaneous
  Country: TR (occurrence: TR)
  Receive Date: 20251209
  Receipt Date: 20251209
  Transmission Date: 20260118
  Serious: Yes (Death, Hospitalization)
  Sender: ABBVIE
  Company Number: TR-JNJFOC-20251209250

PATIENT
  Age: 59 Year
  Sex: Female
  Weight: 70 kg

DRUGS (2)
  1. IMBRUVICA [Suspect]
     Active Substance: IBRUTINIB
     Indication: Diffuse large B-cell lymphoma
     Route: 048
  2. LENALIDOMIDE [Suspect]
     Active Substance: LENALIDOMIDE
     Indication: Lymphoma
     Route: 048
     Dates: start: 20250929, end: 20251014

REACTIONS (2)
  - Lymphoma [Fatal]
  - Toxic epidermal necrolysis [Recovered/Resolved]

NARRATIVE: CASE EVENT DATE: 20251014
